FAERS Safety Report 7667743-8 (Version None)
Quarter: 2011Q3

REPORT INFORMATION
  Report Type: 
  Country: None (occurrence: None)
  Receive Date: 20110806
  Receipt Date: 20110303
  Transmission Date: 20111222
  Serious: No
  Sender: FDA-Public Use
  Company Number: US-ABBOTT-11P-163-0708830-00

PATIENT
  Sex: Male
  Weight: 111.23 kg

DRUGS (7)
  1. FLOVENT [Concomitant]
     Indication: ASTHMA
     Route: 055
  2. HAND HELD NEBULIZER [Concomitant]
     Indication: ASTHMA
     Route: 055
  3. NABUMETONE [Concomitant]
     Indication: PAIN
     Route: 048
  4. ACTOS [Concomitant]
     Indication: PRODUCT USED FOR UNKNOWN INDICATION
     Route: 048
  5. LISINOPRIL [Concomitant]
     Indication: PRODUCT USED FOR UNKNOWN INDICATION
     Route: 048
  6. NIASPAN [Suspect]
     Indication: BLOOD CHOLESTEROL INCREASED
     Dosage: AT BEDTIME
     Route: 048
     Dates: start: 20110224
  7. METFORMIN HCL [Concomitant]
     Indication: PRODUCT USED FOR UNKNOWN INDICATION
     Route: 048

REACTIONS (4)
  - WHEEZING [None]
  - INFLUENZA [None]
  - PYREXIA [None]
  - PAIN [None]
